FAERS Safety Report 10058671 (Version 1)
Quarter: 2014Q2

REPORT INFORMATION
  Report Type: Spontaneous
  Country: US (occurrence: US)
  Receive Date: 20140404
  Receipt Date: 20140404
  Transmission Date: 20141212
  Serious: Yes (Death, Hospitalization)
  Sender: FDA-Public Use
  Company Number: US-AMGEN INC.-USASP2014023586

PATIENT
  Age: 38 Year
  Sex: Male

DRUGS (1)
  1. PROCRIT [Suspect]
     Indication: PRODUCT USED FOR UNKNOWN INDICATION
     Dosage: 20000 UNIT, UNK
     Route: 065

REACTIONS (4)
  - Death [Fatal]
  - Arteriovenous fistula thrombosis [Unknown]
  - Pneumonia [Unknown]
  - Dialysis [Unknown]
